FAERS Safety Report 22294776 (Version 2)
Quarter: 2023Q2

REPORT INFORMATION
  Report Type: Report from Study
  Country: US (occurrence: US)
  Receive Date: 20230508
  Receipt Date: 20230619
  Transmission Date: 20230722
  Serious: Yes (Other)
  Sender: FDA-Public Use
  Company Number: US-BAYER-2023A058756

PATIENT
  Age: 61 Year
  Sex: Female

DRUGS (1)
  1. STIVARGA [Suspect]
     Active Substance: REGORAFENIB
     Indication: Rectal cancer
     Dosage: DAILY DOSE 80 MG ON DAYS 1-21 OF EACH 28 DAY CYCLE
     Route: 048
     Dates: start: 20230116

REACTIONS (8)
  - Gait disturbance [None]
  - Pain in extremity [None]
  - Skin exfoliation [None]
  - Skin burning sensation [None]
  - Quality of life decreased [None]
  - Dysphonia [None]
  - Adverse drug reaction [Unknown]
  - Pain in extremity [Unknown]
